FAERS Safety Report 5566961-2 (Version None)
Quarter: 2007Q4

REPORT INFORMATION
  Report Type: 
  Country: None (occurrence: None)
  Receive Date: 20071219
  Receipt Date: 20070611
  Transmission Date: 20080405
  Serious: No
  Sender: FDA-Public Use
  Company Number: US-BRISTOL-MYERS SQUIBB COMPANY-13840913

PATIENT
  Age: 67 Year
  Sex: Male

DRUGS (2)
  1. PRINIVIL TABS 10 MG [Suspect]
     Indication: HYPERTENSION
     Route: 048
     Dates: start: 20030101
  2. PRAVACHOL [Suspect]

REACTIONS (2)
  - ARTHRALGIA [None]
  - MYALGIA [None]
